FAERS Safety Report 10146475 (Version 1)
Quarter: 2014Q2

REPORT INFORMATION
  Report Type: Spontaneous
  Country: US (occurrence: None)
  Receive Date: 20140430
  Receipt Date: 20140430
  Transmission Date: 20141212
  Serious: Yes (Disabling)
  Sender: FDA-Public Use
  Company Number: None

PATIENT
  Age: 85 Year
  Sex: Female
  Weight: 99.79 kg

DRUGS (1)
  1. LEVOTHYROXINE [Suspect]
     Indication: THYROID DISORDER
     Dosage: 1 DAILY, ONCE DAILY, TAKEN UNDER THE TONGUE
     Route: 048
     Dates: start: 20140127, end: 20140425

REACTIONS (3)
  - Fatigue [None]
  - Blood thyroid stimulating hormone increased [None]
  - Product quality issue [None]
